FAERS Safety Report 15434000 (Version 2)
Quarter: 2018Q4

REPORT INFORMATION
  Report Type: Spontaneous
  Country: US (occurrence: US)
  Receive Date: 20180927
  Receipt Date: 20181203
  Transmission Date: 20190204
  Serious: Yes (Other)
  Sender: FDA-Public Use
  Company Number: US-SA-2018SA264598

PATIENT
  Age: 67 Year
  Sex: Male

DRUGS (1)
  1. XYZAL ALLERGY 24HR [Suspect]
     Active Substance: LEVOCETIRIZINE DIHYDROCHLORIDE
     Indication: HYPERSENSITIVITY
     Dosage: UNK XYZAL ALLERGY, QD

REACTIONS (4)
  - Headache [Unknown]
  - Dizziness [Unknown]
  - Eye burns [Unknown]
  - Eye irritation [Unknown]
